FAERS Safety Report 16460092 (Version 1)
Quarter: 2019Q2

REPORT INFORMATION
  Report Type: Spontaneous
  Country: GB (occurrence: GB)
  Receive Date: 20190620
  Receipt Date: 20190620
  Transmission Date: 20190711
  Serious: Yes (Hospitalization, Other)
  Sender: FDA-Public Use
  Company Number: GB-MYLANLABS-2019M1057314

PATIENT
  Age: 51 Year
  Sex: Male

DRUGS (1)
  1. AZATHIOPRINE. [Suspect]
     Active Substance: AZATHIOPRINE
     Indication: CROHN^S DISEASE
     Route: 065

REACTIONS (8)
  - Pleural effusion [Recovering/Resolving]
  - Pneumonia cytomegaloviral [Recovering/Resolving]
  - Lymphopenia [Recovering/Resolving]
  - Lung consolidation [Recovering/Resolving]
  - Neutropenia [Recovering/Resolving]
  - Hepatomegaly [Recovering/Resolving]
  - Hepatic cyst [Recovering/Resolving]
  - Splenomegaly [Recovering/Resolving]
